FAERS Safety Report 9737560 (Version 2)
Quarter: 2013Q4

REPORT INFORMATION
  Report Type: Spontaneous
  Country: US (occurrence: US)
  Receive Date: 20131207
  Receipt Date: 20131223
  Transmission Date: 20140711
  Serious: No
  Sender: FDA-Public Use
  Company Number: US-009507513-1311USA008754

PATIENT
  Age: 25 Year
  Sex: Female
  Weight: 86.17 kg

DRUGS (4)
  1. NEXPLANON [Suspect]
     Indication: CONTRACEPTION
     Dosage: 1 DF, UNK
     Route: 059
     Dates: start: 20130816
  2. CLINDAMYCIN [Concomitant]
  3. ZANAFLEX [Concomitant]
  4. AMOXICILLIN [Concomitant]

REACTIONS (3)
  - Complication of device removal [Not Recovered/Not Resolved]
  - Medical device complication [Not Recovered/Not Resolved]
  - Drug dose omission [Unknown]
